FAERS Safety Report 25939601 (Version 1)
Quarter: 2025Q4

REPORT INFORMATION
  Report Type: Spontaneous
  Country: JP (occurrence: JP)
  Receive Date: 20251020
  Receipt Date: 20251020
  Transmission Date: 20260118
  Serious: Yes (Other)
  Sender: ROCHE
  Company Number: JP-CHUGAI-2025032480

PATIENT
  Sex: Female

DRUGS (2)
  1. PHESGO [Suspect]
     Active Substance: HYALURONIDASE-ZZXF\PERTUZUMAB\TRASTUZUMAB
     Indication: HER2 positive breast cancer
     Dosage: 10 MILLILITER, ONCE/3WEEKS
     Route: 058
  2. DOCETAXEL [Suspect]
     Active Substance: DOCETAXEL
     Indication: HER2 positive breast cancer
     Dosage: UNK
     Route: 042
     Dates: end: 2025

REACTIONS (5)
  - Cerebral infarction [Unknown]
  - Hypoaesthesia [Not Recovered/Not Resolved]
  - Stomatitis [Unknown]
  - Sensory disturbance [Unknown]
  - Injection site reaction [Unknown]

NARRATIVE: CASE EVENT DATE: 20251008
